FAERS Safety Report 4880800-4 (Version None)
Quarter: 2006Q1

REPORT INFORMATION
  Report Type: 
  Country: None (occurrence: None)
  Receive Date: 20060111
  Receipt Date: 20051108
  Transmission Date: 20060701
  Serious: Yes (Other)
  Sender: FDA-Public Use
  Company Number: 2005S1000243

PATIENT

DRUGS (1)
  1. CUBICIN [Suspect]

REACTIONS (2)
  - ANAPHYLACTIC REACTION [None]
  - RASH [None]
